FAERS Safety Report 4983324-9 (Version None)
Quarter: 2006Q2

REPORT INFORMATION
  Report Type: 
  Country: None (occurrence: None)
  Receive Date: 20060426
  Receipt Date: 20050916
  Transmission Date: 20061013
  Serious: Yes (Hospitalization, Disabling)
  Sender: FDA-Public Use
  Company Number: US-MERCK-0509USA02747

PATIENT
  Age: 62 Year
  Sex: Male
  Weight: 73 kg

DRUGS (2)
  1. VIOXX [Suspect]
     Indication: ARTHRITIS
     Route: 048
     Dates: start: 20000216, end: 20040925
  2. VIOXX [Suspect]
     Indication: PAIN
     Route: 048
     Dates: start: 20000216, end: 20040925

REACTIONS (17)
  - ACUTE MYOCARDIAL INFARCTION [None]
  - ADVERSE EVENT [None]
  - ANAEMIA POSTOPERATIVE [None]
  - ARTERIOSCLEROSIS CORONARY ARTERY [None]
  - ATRIOVENTRICULAR BLOCK COMPLETE [None]
  - CARCINOEMBRYONIC ANTIGEN INCREASED [None]
  - COLONIC POLYP [None]
  - DEPRESSION [None]
  - DIVERTICULUM [None]
  - HYPERLIPIDAEMIA [None]
  - HYPOAESTHESIA [None]
  - LIVER FUNCTION TEST ABNORMAL [None]
  - MELANOCYTIC NAEVUS [None]
  - OSTEOARTHRITIS [None]
  - SWELLING [None]
  - THROMBOSIS [None]
  - WEIGHT INCREASED [None]
